FAERS Safety Report 13102584 (Version 4)
Quarter: 2017Q3

REPORT INFORMATION
  Report Type: Spontaneous
  Country: JP (occurrence: JP)
  Receive Date: 20170110
  Receipt Date: 20170817
  Transmission Date: 20171127
  Serious: Yes (Death, Hospitalization, Other)
  Sender: FDA-Public Use
  Company Number: JP-TEVA-201701_00000045

PATIENT
  Age: 89 Year
  Sex: Male
  Weight: 50.1 kg

DRUGS (126)
  1. DAIKENCHUTO [Concomitant]
     Active Substance: HERBALS
     Route: 048
     Dates: start: 20160102, end: 20160121
  2. MINODRONIC ACID HYDRATE [Concomitant]
     Indication: OSTEOPOROSIS
     Route: 048
     Dates: start: 20151127
  3. BIO-THREE [Concomitant]
     Active Substance: HERBALS
     Route: 048
     Dates: start: 20170121, end: 20170121
  4. TRIMETHOPRIM. [Concomitant]
     Active Substance: TRIMETHOPRIM
     Indication: ANTIFUNGAL PROPHYLAXIS
     Dosage: 80 MILLIGRAM DAILY;
     Route: 048
     Dates: start: 20151221, end: 20160409
  5. BFLUID [Concomitant]
     Active Substance: AMINO ACIDS\DEXTROSE\ELECTROLYTES NOS\VITAMINS
     Route: 042
     Dates: start: 20161227, end: 20170105
  6. BFLUID [Concomitant]
     Active Substance: AMINO ACIDS\DEXTROSE\ELECTROLYTES NOS\VITAMINS
     Dosage: 1500 ML DAILY;
     Route: 042
     Dates: start: 20170120, end: 20170124
  7. VITAMEDIN INTRAVENOUS [Concomitant]
     Active Substance: CYANOCOBALAMIN\PYRIDOXINE HYDROCHLORIDE\THIAMINE
     Route: 042
     Dates: start: 20160113, end: 20160114
  8. CALONAL [Concomitant]
     Active Substance: ACETAMINOPHEN
     Indication: SPINAL COMPRESSION FRACTURE
     Route: 048
     Dates: start: 20160219, end: 20160219
  9. CALONAL [Concomitant]
     Active Substance: ACETAMINOPHEN
     Indication: INCISION SITE PAIN
     Route: 048
     Dates: start: 20161108, end: 20161108
  10. CALONAL [Concomitant]
     Active Substance: ACETAMINOPHEN
     Indication: CYTOMEGALOVIRUS INFECTION
     Route: 048
     Dates: start: 20160109, end: 20160111
  11. ELNEOPA NO.1 [Concomitant]
     Indication: DECREASED APPETITE
     Dosage: 1500 ML DAILY;
     Route: 042
     Dates: start: 20160115, end: 20160117
  12. SODIUM CHLORIDE. [Concomitant]
     Active Substance: SODIUM CHLORIDE
     Indication: HYPONATRAEMIA
     Dosage: 4 GRAM DAILY;
     Route: 042
     Dates: start: 20160118, end: 20160124
  13. BARAMYCIN [Concomitant]
     Active Substance: BACITRACIN\NEOMYCIN SULFATE
     Indication: HERPES ZOSTER DISSEMINATED
     Route: 061
     Dates: start: 20160711, end: 20160911
  14. TRAMCET [Concomitant]
     Active Substance: ACETAMINOPHEN\TRAMADOL
     Route: 048
     Dates: start: 20161115, end: 20161126
  15. PREDNISOLONE TABLETS 5MG. [Suspect]
     Active Substance: PREDNISOLONE
     Indication: PLASMA CELL MYELOMA
     Dosage: 65 MILLIGRAM DAILY;
     Route: 048
     Dates: start: 20151216, end: 20161114
  16. LIMAPROST ALFADEX [Concomitant]
     Active Substance: LIMAPROST
     Indication: LUMBAR SPINAL STENOSIS
     Dosage: 15 MICROGRAM DAILY;
     Route: 048
     Dates: end: 20151207
  17. LIMAPROST ALFADEX [Concomitant]
     Active Substance: LIMAPROST
     Indication: LUMBAR SPINAL STENOSIS
     Dosage: 15 MICROGRAM DAILY;
     Route: 048
     Dates: start: 20151208, end: 20160121
  18. BIO-THREE [Concomitant]
     Active Substance: HERBALS
     Indication: ANTIDIARRHOEAL SUPPORTIVE CARE
     Route: 048
     Dates: start: 20151220, end: 20151230
  19. METOCLOPRAMIDE HYDROCHLORIDE. [Concomitant]
     Active Substance: METOCLOPRAMIDE HYDROCHLORIDE
     Indication: NAUSEA
     Route: 048
     Dates: start: 20151221, end: 20151221
  20. BFLUID [Concomitant]
     Active Substance: AMINO ACIDS\DEXTROSE\ELECTROLYTES NOS\VITAMINS
     Indication: DIARRHOEA
     Dosage: 1000 ML DAILY;
     Route: 042
     Dates: start: 20160111, end: 20160111
  21. CALONAL [Concomitant]
     Active Substance: ACETAMINOPHEN
     Indication: CONTUSION
     Route: 048
     Dates: start: 20160108, end: 20160122
  22. CALONAL [Concomitant]
     Active Substance: ACETAMINOPHEN
     Indication: URINARY TRACT INFECTION
     Route: 048
     Dates: start: 20160223, end: 20160224
  23. PROMETHAZINE METHYLENEDISALICYLATE [Concomitant]
     Active Substance: PROMETHAZINE METHYLENEDISALICYLATE
     Indication: VIRAL UPPER RESPIRATORY TRACT INFECTION
     Dosage: 40.5 MILLIGRAM DAILY;
     Route: 048
     Dates: start: 20160109, end: 20160111
  24. XYLOCAINE [Concomitant]
     Active Substance: LIDOCAINE HYDROCHLORIDE
     Route: 061
     Dates: start: 20170201, end: 20170201
  25. ELNEOPA NO.1 [Concomitant]
     Dosage: 1500 ML DAILY;
     Route: 042
     Dates: start: 20170125, end: 20170126
  26. GANCICLOVIR. [Concomitant]
     Active Substance: GANCICLOVIR
     Indication: CYTOMEGALOVIRUS INFECTION
     Dosage: 500 MILLIGRAM DAILY;
     Route: 042
     Dates: start: 20160118, end: 20160127
  27. LEVOFLOXACIN. [Concomitant]
     Active Substance: LEVOFLOXACIN
     Indication: URINARY TRACT INFECTION
     Dosage: 500 MILLIGRAM DAILY;
     Route: 048
     Dates: start: 20160219, end: 20160223
  28. BORTEZOMIB [Suspect]
     Active Substance: BORTEZOMIB
     Indication: PLASMA CELL MYELOMA
     Route: 058
     Dates: start: 20151215, end: 20161114
  29. RIBOFLAVIN [Concomitant]
     Active Substance: RIBOFLAVIN
     Indication: LUMBAR SPINAL STENOSIS
     Dosage: 7.5 MILLIGRAM DAILY;
     Route: 048
     Dates: end: 20160121
  30. PYRIDOXINE HYDROCHLORIDE. [Concomitant]
     Active Substance: PYRIDOXINE HYDROCHLORIDE
     Indication: LUMBAR SPINAL STENOSIS
     Dosage: 120 MILLIGRAM DAILY;
     Route: 048
     Dates: end: 20160121
  31. CLONAZEPAM. [Concomitant]
     Active Substance: CLONAZEPAM
     Dosage: .4 GRAM DAILY;
     Route: 048
     Dates: start: 20151211, end: 20160115
  32. BISACODYL. [Concomitant]
     Active Substance: BISACODYL
     Indication: CONSTIPATION
     Route: 054
     Dates: start: 20151208, end: 20151208
  33. SOLYUGEN F [Concomitant]
     Indication: DIARRHOEA
     Route: 042
     Dates: start: 20151220, end: 20151220
  34. BFLUID [Concomitant]
     Active Substance: AMINO ACIDS\DEXTROSE\ELECTROLYTES NOS\VITAMINS
     Dosage: 1500 ML DAILY;
     Route: 042
     Dates: start: 20170115, end: 20170117
  35. LOPERAMIDE HYDROCHLORIDE. [Concomitant]
     Active Substance: LOPERAMIDE HYDROCHLORIDE
     Dosage: 2 MILLIGRAM DAILY;
     Route: 048
     Dates: start: 20160223, end: 20160224
  36. CHLORHEXIDINE GLUCONATE. [Concomitant]
     Active Substance: CHLORHEXIDINE GLUCONATE
     Route: 061
     Dates: start: 20160520
  37. XYLOCAINE [Concomitant]
     Active Substance: LIDOCAINE HYDROCHLORIDE
     Indication: CENTRAL VENOUS CATHETERISATION
     Route: 061
     Dates: start: 20160302, end: 20160302
  38. FUROSEMIDE. [Concomitant]
     Active Substance: FUROSEMIDE
     Dosage: 20 MILLIGRAM DAILY;
     Route: 042
     Dates: start: 20160125, end: 20160127
  39. BROTIZOLAM [Concomitant]
     Active Substance: BROTIZOLAM
     Indication: INSOMNIA
     Route: 048
     Dates: start: 20160124, end: 20160124
  40. BARAMYCIN [Concomitant]
     Active Substance: BACITRACIN\NEOMYCIN SULFATE
     Indication: DECUBITUS ULCER
     Route: 061
     Dates: start: 20161128, end: 20161218
  41. GENINAX [Concomitant]
     Active Substance: GARENOXACIN MESYLATE
     Indication: PNEUMONIA
     Dosage: 400 MILLIGRAM DAILY;
     Route: 048
     Dates: start: 20161114, end: 20161120
  42. BORTEZOMIB [Suspect]
     Active Substance: BORTEZOMIB
     Route: 058
     Dates: start: 20161128
  43. DARATUMUMAB [Suspect]
     Active Substance: DARATUMUMAB
     Indication: PLASMA CELL MYELOMA
     Route: 042
     Dates: start: 20151215, end: 20161114
  44. BIOFERMIN [Concomitant]
     Active Substance: BACILLUS SUBTILIS\LACTOBACILLUS ACIDOPHILUS\STREPTOCOCCUS FAECAIS
     Indication: PROPHYLAXIS
     Route: 048
     Dates: end: 20151208
  45. BIOFERMIN [Concomitant]
     Active Substance: BACILLUS SUBTILIS\LACTOBACILLUS ACIDOPHILUS\STREPTOCOCCUS FAECAIS
     Indication: ENTEROCOLITIS
  46. FEBUXOSTAT. [Concomitant]
     Active Substance: FEBUXOSTAT
     Indication: HYPERURICAEMIA
     Dosage: 40 MILLIGRAM DAILY;
     Route: 048
     Dates: end: 20160115
  47. ACETAMINOPHEN. [Concomitant]
     Active Substance: ACETAMINOPHEN
     Indication: VIRAL UPPER RESPIRATORY TRACT INFECTION
     Dosage: 450 MILLIGRAM DAILY;
     Route: 048
     Dates: start: 20160109, end: 20160111
  48. UREA. [Concomitant]
     Active Substance: UREA
     Indication: DRY SKIN
     Route: 061
     Dates: start: 20151202
  49. BIO-THREE [Concomitant]
     Active Substance: HERBALS
     Route: 048
     Dates: start: 20160611, end: 20160613
  50. BFLUID [Concomitant]
     Active Substance: AMINO ACIDS\DEXTROSE\ELECTROLYTES NOS\VITAMINS
     Dosage: 500 ML DAILY;
     Route: 042
     Dates: start: 20170118, end: 20170119
  51. K-SUPPLY [Concomitant]
     Active Substance: POTASSIUM CHLORIDE
     Indication: HYPOKALAEMIA
     Dosage: 1200 MILLIGRAM DAILY;
     Route: 048
     Dates: start: 20160105, end: 20160112
  52. CALONAL [Concomitant]
     Active Substance: ACETAMINOPHEN
     Indication: PYREXIA
     Dosage: 200 MILLIGRAM DAILY;
     Route: 048
     Dates: start: 20161205, end: 20161206
  53. ANHYDROUS CAFFEINE [Concomitant]
     Active Substance: CAFFEINE
     Indication: VIRAL UPPER RESPIRATORY TRACT INFECTION
     Dosage: 180 MILLIGRAM DAILY;
     Route: 048
     Dates: start: 20160109, end: 20160111
  54. ELNEOPA NO.1 [Concomitant]
     Indication: MARASMUS
     Dosage: 1500 ML DAILY;
     Route: 042
     Dates: start: 20160118, end: 20160131
  55. SODIUM CHLORIDE. [Concomitant]
     Active Substance: SODIUM CHLORIDE
     Dosage: 2 GRAM DAILY;
     Route: 042
     Dates: start: 20160125, end: 20160127
  56. FUROSEMIDE. [Concomitant]
     Active Substance: FUROSEMIDE
     Indication: PLEURAL EFFUSION
     Dosage: 20 MILLIGRAM DAILY;
     Route: 042
     Dates: start: 20160121, end: 20160123
  57. VALGANCICLOVIR HYDROCHLORIDE. [Concomitant]
     Active Substance: VALGANCICLOVIR HYDROCHLORIDE
     Indication: ANTIVIRAL PROPHYLAXIS
     Dosage: 450 MILLIGRAM DAILY;
     Route: 048
     Dates: start: 20160216, end: 20160409
  58. SULFAMETHOXAZOLE/TRIMETHOPRIM [Concomitant]
     Active Substance: SULFAMETHOXAZOLE\TRIMETHOPRIM
     Indication: ANTIFUNGAL PROPHYLAXIS
     Route: 048
     Dates: start: 20160418
  59. RINDERON VG [Concomitant]
     Active Substance: BETAMETHASONE VALERATE\GENTAMICIN SULFATE
     Indication: HERPES ZOSTER DISSEMINATED
     Route: 061
     Dates: start: 20160514, end: 20160514
  60. BARAMYCIN [Concomitant]
     Active Substance: BACITRACIN\NEOMYCIN SULFATE
     Indication: PERICHONDRITIS
     Route: 061
     Dates: start: 20160321, end: 20160623
  61. BARAMYCIN [Concomitant]
     Active Substance: BACITRACIN\NEOMYCIN SULFATE
     Route: 061
     Dates: start: 20161226
  62. TRAMCET [Concomitant]
     Active Substance: ACETAMINOPHEN\TRAMADOL
     Indication: HERPES ZOSTER DISSEMINATED
     Route: 048
     Dates: start: 20161108, end: 20161114
  63. POLAPREZINC [Concomitant]
     Active Substance: POLAPREZINC
     Indication: ZINC DEFICIENCY
     Dosage: 150 MILLIGRAM DAILY;
     Route: 048
     Dates: start: 20161227, end: 20170119
  64. INSULIN HUMAN(GENETICAL RECOMBINATION) [Concomitant]
     Indication: PROPHYLAXIS
     Route: 042
     Dates: start: 20170125, end: 20170126
  65. MELPHALAN. [Suspect]
     Active Substance: MELPHALAN
     Indication: PLASMA CELL MYELOMA
     Dosage: 10 MILLIGRAM DAILY;
     Route: 048
     Dates: start: 20151215, end: 20161114
  66. CYANOCOBALAMIN. [Concomitant]
     Active Substance: CYANOCOBALAMIN
     Indication: LUMBAR SPINAL STENOSIS
     Dosage: .75 MILLIGRAM DAILY;
     Route: 048
     Dates: end: 20160121
  67. CLONAZEPAM. [Concomitant]
     Active Substance: CLONAZEPAM
     Indication: ESSENTIAL TREMOR
     Dosage: .4 GRAM DAILY;
     Route: 048
     Dates: end: 20151210
  68. SENNOSIDE [Concomitant]
     Active Substance: SENNOSIDES
     Indication: CONSTIPATION
     Route: 048
     Dates: end: 20151218
  69. TRAMADOL HYDROCHLORIDE. [Concomitant]
     Active Substance: TRAMADOL HYDROCHLORIDE
     Indication: SPINAL COMPRESSION FRACTURE
     Dosage: 112.5 MILLIGRAM DAILY;
     Route: 048
     Dates: end: 20160115
  70. CEFTRIAXONE NA [Concomitant]
     Active Substance: CEFTRIAXONE
     Indication: BRONCHITIS
     Dosage: 2 GRAM DAILY;
     Route: 042
     Dates: start: 20151204, end: 20151210
  71. ONDANSETRON [Concomitant]
     Active Substance: ONDANSETRON
     Indication: PROPHYLAXIS OF NAUSEA AND VOMITING
     Route: 048
     Dates: start: 20151215, end: 20161201
  72. BFLUID [Concomitant]
     Active Substance: AMINO ACIDS\DEXTROSE\ELECTROLYTES NOS\VITAMINS
     Indication: DECREASED APPETITE
     Dosage: 500 ML DAILY;
     Route: 042
     Dates: start: 20151223, end: 20151223
  73. LACTEC D [Concomitant]
     Indication: DIARRHOEA
     Dosage: 500 ML DAILY;
     Route: 042
     Dates: start: 20160112, end: 20160112
  74. MAGNESIUM OXIDE. [Concomitant]
     Active Substance: MAGNESIUM OXIDE
     Route: 048
     Dates: start: 20161226, end: 20170119
  75. NORMAL SALINE [Concomitant]
     Active Substance: SODIUM CHLORIDE
     Indication: LOSS OF CONSCIOUSNESS
     Dosage: 1000 ML DAILY;
     Route: 042
     Dates: start: 20160101, end: 20160103
  76. CALONAL [Concomitant]
     Active Substance: ACETAMINOPHEN
     Indication: VIRAL UPPER RESPIRATORY TRACT INFECTION
  77. XYLOCAINE [Concomitant]
     Active Substance: LIDOCAINE HYDROCHLORIDE
     Route: 061
     Dates: start: 20170125, end: 20170125
  78. KETOPROFEN. [Concomitant]
     Active Substance: KETOPROFEN
     Indication: LUMBAR SPINAL STENOSIS
     Route: 061
     Dates: start: 20160206
  79. PARAFFIN [Concomitant]
     Active Substance: PARAFFIN
     Indication: SKIN EROSION
     Route: 061
     Dates: start: 20161003
  80. POLAPREZINC [Concomitant]
     Active Substance: POLAPREZINC
     Route: 048
     Dates: start: 20170121, end: 20170121
  81. DARATUMUMAB [Suspect]
     Active Substance: DARATUMUMAB
     Route: 042
     Dates: start: 20161128
  82. OCTOTIAMINE [Concomitant]
     Active Substance: OCTOTIAMINE
     Indication: LUMBAR SPINAL STENOSIS
     Dosage: 75 MILLIGRAM DAILY;
     Route: 048
     Dates: end: 20160121
  83. ACETAMINOPHEN. [Concomitant]
     Active Substance: ACETAMINOPHEN
     Indication: SPINAL COMPRESSION FRACTURE
     Dosage: 975 MILLIGRAM DAILY;
     Route: 048
     Dates: end: 20160115
  84. BIO-THREE [Concomitant]
     Active Substance: HERBALS
     Indication: DIARRHOEA
     Route: 048
     Dates: start: 20160219, end: 20160221
  85. BIO-THREE [Concomitant]
     Active Substance: HERBALS
     Route: 048
     Dates: start: 20161222, end: 20170119
  86. ACICLOVIR [Concomitant]
     Active Substance: ACYCLOVIR
     Dosage: 200 MILLIGRAM DAILY;
     Route: 048
     Dates: start: 20160531, end: 20170119
  87. BFLUID [Concomitant]
     Active Substance: AMINO ACIDS\DEXTROSE\ELECTROLYTES NOS\VITAMINS
     Indication: PROPHYLAXIS AGAINST DEHYDRATION
     Dosage: 1000 ML DAILY;
     Route: 042
     Dates: start: 20151221, end: 20151221
  88. BFLUID [Concomitant]
     Active Substance: AMINO ACIDS\DEXTROSE\ELECTROLYTES NOS\VITAMINS
     Dosage: 1000 ML DAILY;
     Route: 042
     Dates: start: 20160113, end: 20160114
  89. LACTEC D [Concomitant]
     Dosage: 500 ML DAILY;
     Route: 042
     Dates: start: 20161207, end: 20161207
  90. SENNOSIDE [Concomitant]
     Active Substance: SENNOSIDES
     Indication: CONSTIPATION
     Route: 048
     Dates: start: 20151230, end: 20160102
  91. MAGNESIUM OXIDE. [Concomitant]
     Active Substance: MAGNESIUM OXIDE
     Indication: CONSTIPATION
     Route: 048
     Dates: start: 20160104, end: 20160930
  92. CALONAL [Concomitant]
     Active Substance: ACETAMINOPHEN
     Indication: INFLUENZA
     Route: 048
     Dates: start: 20160220, end: 20160311
  93. SALICYLAMIDE [Concomitant]
     Active Substance: SALICYLAMIDE
     Indication: VIRAL UPPER RESPIRATORY TRACT INFECTION
     Dosage: 810 MILLIGRAM DAILY;
     Route: 048
     Dates: start: 20160109, end: 20160111
  94. LOXONIN [Concomitant]
     Active Substance: LOXOPROFEN SODIUM
     Indication: PYREXIA
     Route: 048
     Dates: start: 20160111, end: 20160111
  95. FLOMAX [Concomitant]
     Active Substance: TAMSULOSIN HYDROCHLORIDE
     Indication: HERPES ZOSTER DISSEMINATED
     Dosage: 300 MILLIGRAM DAILY;
     Route: 048
     Dates: start: 20160514, end: 20160517
  96. EKSALB [Concomitant]
     Indication: SKIN EROSION
     Route: 061
     Dates: start: 20161024, end: 20161225
  97. INSULIN HUMAN(GENETICAL RECOMBINATION) [Concomitant]
     Route: 042
     Dates: start: 20170127
  98. DAIKENCHUTO [Concomitant]
     Active Substance: HERBALS
     Indication: CONSTIPATION
     Route: 048
     Dates: end: 20151218
  99. BIO-THREE [Concomitant]
     Active Substance: HERBALS
     Route: 048
     Dates: start: 20160222, end: 20160223
  100. ACICLOVIR [Concomitant]
     Active Substance: ACYCLOVIR
     Dosage: 200 MILLIGRAM DAILY;
     Route: 048
     Dates: start: 20170121, end: 20170121
  101. BFLUID [Concomitant]
     Active Substance: AMINO ACIDS\DEXTROSE\ELECTROLYTES NOS\VITAMINS
     Dosage: 500 ML DAILY;
     Route: 042
     Dates: start: 20170106, end: 20170114
  102. LACTEC D [Concomitant]
     Dosage: 500 ML DAILY;
     Route: 042
     Dates: start: 20160414, end: 20160414
  103. LOPERAMIDE HYDROCHLORIDE. [Concomitant]
     Active Substance: LOPERAMIDE HYDROCHLORIDE
     Route: 048
     Dates: start: 20160105, end: 20160109
  104. CHLORHEXIDINE GLUCONATE. [Concomitant]
     Active Substance: CHLORHEXIDINE GLUCONATE
     Indication: SKIN EROSION
     Route: 061
     Dates: start: 20160106, end: 20160109
  105. CHLORHEXIDINE GLUCONATE. [Concomitant]
     Active Substance: CHLORHEXIDINE GLUCONATE
     Indication: SKIN ABRASION
     Route: 061
     Dates: start: 20160328, end: 20160509
  106. LOXONIN [Concomitant]
     Active Substance: LOXOPROFEN SODIUM
     Indication: ABDOMINAL TENDERNESS
     Route: 048
     Dates: start: 20160417, end: 20160417
  107. TRAMCET [Concomitant]
     Active Substance: ACETAMINOPHEN\TRAMADOL
     Indication: CONTUSION
     Route: 048
     Dates: start: 20160524, end: 20160608
  108. PREDNISOLONE TABLETS 5MG. [Suspect]
     Active Substance: PREDNISOLONE
     Dosage: 65 MILLIGRAM DAILY;
     Route: 048
     Dates: start: 20161128
  109. MELPHALAN. [Suspect]
     Active Substance: MELPHALAN
     Dosage: 10 MILLIGRAM DAILY;
     Route: 048
     Dates: start: 20161128
  110. DOMPERIDONE [Concomitant]
     Active Substance: DOMPERIDONE
     Indication: PROPHYLAXIS OF NAUSEA AND VOMITING
     Dosage: 1 GRAM DAILY;
     Route: 048
     Dates: end: 20151208
  111. KETOPROFEN. [Concomitant]
     Active Substance: KETOPROFEN
     Indication: SPINAL COMPRESSION FRACTURE
     Route: 061
     Dates: end: 20151228
  112. BISACODYL. [Concomitant]
     Active Substance: BISACODYL
     Route: 054
     Dates: start: 20160102, end: 20160107
  113. SODIUM GUALENATE HYDRATE [Concomitant]
     Active Substance: SODIUM GUALENATE MONOHYDRATE
     Indication: INFECTION PROPHYLAXIS
     Route: 065
     Dates: start: 20151216, end: 20160930
  114. SULFAMETHOXAZOLE [Concomitant]
     Active Substance: SULFAMETHOXAZOLE
     Indication: ANTIFUNGAL PROPHYLAXIS
     Dosage: 400 MILLIGRAM DAILY;
     Route: 048
     Dates: start: 20151221, end: 20160409
  115. ACICLOVIR [Concomitant]
     Active Substance: ACYCLOVIR
     Indication: ANTIVIRAL PROPHYLAXIS
     Dosage: 200 MILLIGRAM DAILY;
     Route: 048
     Dates: start: 20151221, end: 20160215
  116. BFLUID [Concomitant]
     Active Substance: AMINO ACIDS\DEXTROSE\ELECTROLYTES NOS\VITAMINS
     Dosage: 1000 ML DAILY;
     Route: 042
     Dates: start: 20161221, end: 20161226
  117. BFLUID [Concomitant]
     Active Substance: AMINO ACIDS\DEXTROSE\ELECTROLYTES NOS\VITAMINS
     Dosage: 500 ML DAILY;
     Route: 042
     Dates: start: 20170125, end: 20170125
  118. VITAMEDIN INTRAVENOUS [Concomitant]
     Active Substance: CYANOCOBALAMIN\PYRIDOXINE HYDROCHLORIDE\THIAMINE
     Indication: DECREASED APPETITE
     Route: 042
     Dates: start: 20151221, end: 20151221
  119. VITAMEDIN INTRAVENOUS [Concomitant]
     Active Substance: CYANOCOBALAMIN\PYRIDOXINE HYDROCHLORIDE\THIAMINE
     Indication: DIARRHOEA
     Route: 042
     Dates: start: 20151223, end: 20151223
  120. VITAMEDIN INTRAVENOUS [Concomitant]
     Active Substance: CYANOCOBALAMIN\PYRIDOXINE HYDROCHLORIDE\THIAMINE
     Indication: PROPHYLAXIS AGAINST DEHYDRATION
     Route: 042
     Dates: start: 20160111, end: 20160111
  121. LACTEC D [Concomitant]
     Indication: DECREASED APPETITE
     Dosage: 500 ML DAILY;
     Route: 042
     Dates: start: 20151224, end: 20151224
  122. LOPERAMIDE HYDROCHLORIDE. [Concomitant]
     Active Substance: LOPERAMIDE HYDROCHLORIDE
     Indication: ANTIDIARRHOEAL SUPPORTIVE CARE
     Dosage: 2 MILLIGRAM DAILY;
     Route: 048
     Dates: start: 20151225, end: 20151227
  123. LOPERAMIDE HYDROCHLORIDE. [Concomitant]
     Active Substance: LOPERAMIDE HYDROCHLORIDE
     Dosage: 2 MILLIGRAM DAILY;
     Route: 048
     Dates: start: 20160215, end: 20160217
  124. LOPERAMIDE HYDROCHLORIDE. [Concomitant]
     Active Substance: LOPERAMIDE HYDROCHLORIDE
     Dosage: 2 MILLIGRAM DAILY;
     Route: 048
     Dates: start: 20160308, end: 20160310
  125. SENNOSIDE [Concomitant]
     Active Substance: SENNOSIDES
     Route: 048
     Dates: start: 20160606, end: 20160606
  126. XYLOCAINE [Concomitant]
     Active Substance: LIDOCAINE HYDROCHLORIDE
     Indication: BIOPSY BONE MARROW
     Route: 061
     Dates: start: 20160115, end: 20160115

REACTIONS (27)
  - Incision site pain [Unknown]
  - Hypokalaemia [Unknown]
  - Decreased appetite [Recovering/Resolving]
  - Malnutrition [Unknown]
  - Nausea [Unknown]
  - Diarrhoea [Unknown]
  - Abdominal tenderness [Unknown]
  - Decubitus ulcer [Not Recovered/Not Resolved]
  - Cytomegalovirus infection [Unknown]
  - Perichondritis [Unknown]
  - Orthostatic intolerance [Unknown]
  - Hyponatraemia [Unknown]
  - Fall [Unknown]
  - Herpes zoster disseminated [Unknown]
  - Insomnia [Unknown]
  - Pneumonia [Fatal]
  - Skin abrasion [Unknown]
  - Skin erosion [Unknown]
  - Loss of consciousness [Unknown]
  - Nasopharyngitis [Unknown]
  - Platelet count decreased [Unknown]
  - Haemorrhage subcutaneous [Unknown]
  - Pleural effusion [Unknown]
  - Bone pain [Unknown]
  - Pyrexia [Recovered/Resolved]
  - Urinary tract infection [Unknown]
  - Influenza [Unknown]

NARRATIVE: CASE EVENT DATE: 20151219
